FAERS Safety Report 6990457-4 (Version None)
Quarter: 2010Q3

REPORT INFORMATION
  Report Type: 
  Country: None (occurrence: None)
  Receive Date: 20100916
  Receipt Date: 20100623
  Transmission Date: 20110219
  Serious: Yes (Other)
  Sender: FDA-Public Use
  Company Number: US-PFIZER INC-2010078921

PATIENT
  Sex: Male

DRUGS (1)
  1. LYRICA [Suspect]
     Indication: NEURALGIA
     Dosage: 150 MG, 2X/DAY

REACTIONS (4)
  - GASTROOESOPHAGEAL REFLUX DISEASE [None]
  - HYPERTONIC BLADDER [None]
  - LARYNX IRRITATION [None]
  - URINARY TRACT DISORDER [None]
